FAERS Safety Report 4786680-X (Version None)
Quarter: 2005Q4

REPORT INFORMATION
  Report Type: 
  Country: None (occurrence: None)
  Receive Date: 20051004
  Receipt Date: 20050922
  Transmission Date: 20060501
  Serious: Yes (Hospitalization)
  Sender: FDA-Public Use
  Company Number: DE-BOEHRINGER INGELHEIM PHARMACEUTICALS, INC.-2005-DE-04020DE

PATIENT
  Age: 72 Year
  Sex: Male

DRUGS (2)
  1. SPIRIVA [Suspect]
     Indication: CHRONIC OBSTRUCTIVE PULMONARY DISEASE
     Route: 055
  2. SPIRIVA [Suspect]
     Indication: BRONCHITIS CHRONIC

REACTIONS (9)
  - ANGIONEUROTIC OEDEMA [None]
  - CHRONIC SINUSITIS [None]
  - DRUG HYPERSENSITIVITY [None]
  - DYSPNOEA [None]
  - GASTROINTESTINAL CANDIDIASIS [None]
  - PRURITUS [None]
  - URETHRITIS [None]
  - URINARY TRACT INFECTION ENTEROCOCCAL [None]
  - URTICARIA [None]
